FAERS Safety Report 15679465 (Version 2)
Quarter: 2020Q4

REPORT INFORMATION
  Report Type: Spontaneous
  Country: DE (occurrence: DE)
  Receive Date: 20181203
  Receipt Date: 20201210
  Transmission Date: 20210113
  Serious: Yes (Other)
  Sender: FDA-Public Use
  Company Number: DE-TEVA-2018-DE-980672

PATIENT
  Age: 71 Year
  Sex: Male

DRUGS (1)
  1. VALSARTAN ABZ 160 MG FILMTABLETTEN [Suspect]
     Active Substance: VALSARTAN
     Route: 048
     Dates: start: 20150917, end: 20180621

REACTIONS (1)
  - Prostate cancer [Unknown]

NARRATIVE: CASE EVENT DATE: 20160907
